FAERS Safety Report 10142052 (Version 1)
Quarter: 2014Q2

REPORT INFORMATION
  Report Type: Spontaneous
  Country: US (occurrence: US)
  Receive Date: 20140429
  Receipt Date: 20140429
  Transmission Date: 20141212
  Serious: No
  Sender: FDA-Public Use
  Company Number: US-ASTRAZENECA-2014SE25273

PATIENT
  Sex: Female

DRUGS (2)
  1. PULMICORT FLEXHALER [Suspect]
     Route: 055
     Dates: start: 2014
  2. PULMICORT FLEXHALER [Suspect]
     Route: 055

REACTIONS (2)
  - Dizziness [Unknown]
  - Circumstance or information capable of leading to device use error [Unknown]
